FAERS Safety Report 8252500-4 (Version None)
Quarter: 2012Q2

REPORT INFORMATION
  Report Type: 
  Country: None (occurrence: None)
  Receive Date: 20120402
  Receipt Date: 20111102
  Transmission Date: 20120825
  Serious: No
  Sender: FDA-Public Use
  Company Number: US-ABBOTT-11P-163-0870995-00

PATIENT
  Sex: Male

DRUGS (1)
  1. ANDROGEL [Suspect]
     Indication: BLOOD TESTOSTERONE DECREASED
     Dosage: AS DIRECTED
     Dates: start: 20110601, end: 20111001

REACTIONS (6)
  - PRURITUS [None]
  - SOMNOLENCE [None]
  - COUGH [None]
  - DYSPHAGIA [None]
  - LIP SWELLING [None]
  - CHEST DISCOMFORT [None]
